FAERS Safety Report 5676868-8 (Version None)
Quarter: 2008Q1

REPORT INFORMATION
  Report Type: 
  Country: None (occurrence: None)
  Receive Date: 20080324
  Receipt Date: 20080314
  Transmission Date: 20080703
  Serious: Yes (Hospitalization)
  Sender: FDA-Public Use
  Company Number: JP-MERCK-0802USA04804

PATIENT
  Age: 71 Year
  Sex: Female

DRUGS (8)
  1. PEPCID [Suspect]
     Indication: GASTRITIS PROPHYLAXIS
     Route: 048
     Dates: start: 20010101, end: 20080210
  2. AMLODIN [Suspect]
     Indication: HYPERTENSION
     Route: 048
     Dates: start: 20010101, end: 20080210
  3. BUFFERIN [Concomitant]
     Indication: LACUNAR INFARCTION
     Route: 048
     Dates: start: 20010101, end: 20080210
  4. DEPAS [Concomitant]
     Indication: INSOMNIA
     Route: 048
     Dates: start: 20010101, end: 20080210
  5. GLYSENNID [Concomitant]
     Indication: CONSTIPATION
     Route: 048
     Dates: start: 20010101, end: 20080210
  6. ACTONEL [Suspect]
     Indication: OSTEOPOROSIS
     Route: 048
     Dates: start: 20070326, end: 20080210
  7. ASPARA [Concomitant]
     Indication: OSTEOPOROSIS
     Route: 048
     Dates: start: 20070326, end: 20080210
  8. ONEALFA [Concomitant]
     Indication: OSTEOPOROSIS
     Route: 048
     Dates: start: 20070326, end: 20080210

REACTIONS (4)
  - HAEMATURIA [None]
  - HAEMOGLOBIN DECREASED [None]
  - HAEMOLYTIC ANAEMIA [None]
  - THROMBOTIC THROMBOCYTOPENIC PURPURA [None]
